FAERS Safety Report 5387395-X (Version None)
Quarter: 2007Q3

REPORT INFORMATION
  Report Type: 
  Country: None (occurrence: None)
  Receive Date: 20070716
  Receipt Date: 20070709
  Transmission Date: 20080115
  Serious: Yes (Hospitalization)
  Sender: FDA-Public Use
  Company Number: JP-BAYER-200713811GDS

PATIENT
  Age: 81 Year
  Sex: Male

DRUGS (6)
  1. ASPIRIN [Suspect]
     Indication: CEREBROVASCULAR DISORDER
     Route: 065
     Dates: start: 20060401
  2. ETODOLAC [Suspect]
     Indication: BACK PAIN
     Route: 065
     Dates: start: 20060401
  3. RISEDRONATE SODIUM [Concomitant]
     Indication: BACK PAIN
     Route: 065
     Dates: start: 20060401
  4. PRANOPROFEN [Concomitant]
     Indication: UPPER RESPIRATORY TRACT INFECTION
     Route: 065
     Dates: start: 20060910
  5. EPRAZINONE HYDROCHLORIDE [Concomitant]
     Indication: UPPER RESPIRATORY TRACT INFECTION
     Route: 065
     Dates: start: 20060910
  6. ROKITAMYCIN [Concomitant]
     Indication: UPPER RESPIRATORY TRACT INFECTION
     Route: 065
     Dates: start: 20060910

REACTIONS (1)
  - NEPHRITIS INTERSTITIAL [None]
